FAERS Safety Report 15922783 (Version 1)
Quarter: 2019Q1

REPORT INFORMATION
  Report Type: Report from Study
  Country: IT (occurrence: IT)
  Receive Date: 20190206
  Receipt Date: 20190206
  Transmission Date: 20190417
  Serious: Yes (Other)
  Sender: FDA-Public Use
  Company Number: IT-TEVA-2019-IT-1006958

PATIENT
  Age: 37 Year
  Sex: Male

DRUGS (2)
  1. XARENEL [Concomitant]
     Indication: VITAMIN D DEFICIENCY
     Route: 048
  2. COPAXONE [Suspect]
     Active Substance: GLATIRAMER ACETATE
     Indication: RELAPSING-REMITTING MULTIPLE SCLEROSIS
     Route: 058
     Dates: start: 20160601

REACTIONS (1)
  - Azotaemia [Unknown]

NARRATIVE: CASE EVENT DATE: 20190107
